FAERS Safety Report 7942138-8 (Version None)
Quarter: 2011Q4

REPORT INFORMATION
  Report Type: 
  Country: None (occurrence: None)
  Receive Date: 20111123
  Receipt Date: 20111123
  Transmission Date: 20120403
  Serious: Yes (Other)
  Sender: FDA-Public Use
  Company Number: None

PATIENT
  Age: 66 Year
  Sex: Female
  Weight: 66.6788 kg

DRUGS (1)
  1. LIVALO [Suspect]
     Indication: BLOOD CHOLESTEROL
     Dosage: 4 MG 1 PER DAY
     Dates: start: 20110301, end: 20111021

REACTIONS (4)
  - DYSPNOEA EXERTIONAL [None]
  - ASTHENIA [None]
  - MUSCLE SPASMS [None]
  - APHONIA [None]
